FAERS Safety Report 7875563-4 (Version None)
Quarter: 2011Q4

REPORT INFORMATION
  Report Type: 
  Country: None (occurrence: None)
  Receive Date: 20111031
  Receipt Date: 20111028
  Transmission Date: 20120403
  Serious: Yes (Life-Threatening, Other)
  Sender: FDA-Public Use
  Company Number: PHEH2011US04392

PATIENT
  Sex: Female

DRUGS (1)
  1. VIVELLE-DOT [Suspect]
     Dosage: 0.05
     Route: 062
     Dates: start: 20101201, end: 20110701

REACTIONS (4)
  - FEELING ABNORMAL [None]
  - ASTHENIA [None]
  - DIZZINESS [None]
  - BLOOD PRESSURE DECREASED [None]
